FAERS Safety Report 17850016 (Version 1)
Quarter: 2020Q2

REPORT INFORMATION
  Report Type: Spontaneous
  Country: US (occurrence: US)
  Receive Date: 20200602
  Receipt Date: 20200602
  Transmission Date: 20200714
  Serious: Yes (Death, Hospitalization, Disabling)
  Sender: FDA-Public Use
  Company Number: US-ROCHE-900100168001

PATIENT
  Age: 26 Year
  Sex: Male

DRUGS (2)
  1. BACTRIM DS [Suspect]
     Active Substance: SULFAMETHOXAZOLE\TRIMETHOPRIM
     Indication: EAR INFECTION
     Dosage: 160 MG OF SULFAMETHOXAZOLE-800 MG OF TRIMETHOPRIM (BACTRIM DS)
     Route: 065
  2. ACETAMINOPHEN. [Concomitant]
     Active Substance: ACETAMINOPHEN
     Indication: EAR INFECTION
     Route: 065

REACTIONS (3)
  - Hepatic failure [Fatal]
  - Pancreatitis haemorrhagic [Fatal]
  - Hypersensitivity [Fatal]
